FAERS Safety Report 5845065-5 (Version None)
Quarter: 2008Q3

REPORT INFORMATION
  Report Type: 
  Country: None (occurrence: None)
  Receive Date: 20080813
  Receipt Date: 20080813
  Transmission Date: 20090109
  Serious: Yes (Other)
  Sender: FDA-Public Use
  Company Number: None

PATIENT
  Age: 53 Year
  Sex: Female
  Weight: 71.6683 kg

DRUGS (2)
  1. AMRIX [Suspect]
     Indication: FIBROMYALGIA
     Dosage: 1 CAP PER DAY PO
     Route: 048
     Dates: start: 20080811, end: 20080812
  2. AMRIX [Suspect]
     Indication: INSOMNIA
     Dosage: 1 CAP PER DAY PO
     Route: 048
     Dates: start: 20080811, end: 20080812

REACTIONS (2)
  - URINE ABNORMALITY [None]
  - URTICARIA [None]
